FAERS Safety Report 5736345-2 (Version None)
Quarter: 2008Q2

REPORT INFORMATION
  Report Type: 
  Country: None (occurrence: None)
  Receive Date: 20080506
  Receipt Date: 20070829
  Transmission Date: 20081010
  Serious: Yes (Death)
  Sender: FDA-Public Use
  Company Number: T200701005

PATIENT
  Age: 2 Year
  Sex: Female

DRUGS (3)
  1. OXYCODONE HCL [Suspect]
  2. METHADOSE [Suspect]
  3. DARVON [Suspect]

REACTIONS (1)
  - INTENTIONAL DRUG MISUSE [None]
